FAERS Safety Report 7954136-9 (Version None)
Quarter: 2011Q4

REPORT INFORMATION
  Report Type: 
  Country: None (occurrence: None)
  Receive Date: 20111202
  Receipt Date: 20111122
  Transmission Date: 20120403
  Serious: Yes (Hospitalization)
  Sender: FDA-Public Use
  Company Number: US-BAYER-2011-023030

PATIENT
  Age: 32 Year
  Sex: Female
  Weight: 63.492 kg

DRUGS (8)
  1. YASMIN [Suspect]
     Indication: PREMENSTRUAL SYNDROME
  2. AMITRIPTYLINE HCL [Concomitant]
     Dosage: 25 MG, QD
     Route: 048
     Dates: start: 20040101
  3. YASMIN [Suspect]
     Indication: CONTRACEPTION
     Dosage: UNK
     Dates: start: 20021201, end: 20080601
  4. MACROBID [Concomitant]
     Route: 048
  5. DROSPIRENONE AND ETHINYL ESTRADIOL [Suspect]
     Indication: CONTRACEPTION
     Dosage: UNK
     Dates: start: 20080601, end: 20090901
  6. DROSPIRENONE AND ETHINYL ESTRADIOL [Suspect]
     Indication: PREMENSTRUAL SYNDROME
  7. ESTRING [Concomitant]
     Dosage: UNK
     Route: 067
     Dates: start: 20060601, end: 20091001
  8. ESTRACE [Concomitant]
     Dosage: UNK
     Route: 061
     Dates: start: 20040101

REACTIONS (4)
  - PAIN [None]
  - EMOTIONAL DISTRESS [None]
  - CHOLECYSTITIS ACUTE [None]
  - INJURY [None]
